FAERS Safety Report 8157368-2 (Version None)
Quarter: 2012Q1

REPORT INFORMATION
  Report Type: 
  Country: None (occurrence: None)
  Receive Date: 20120222
  Receipt Date: 20120210
  Transmission Date: 20120608
  Serious: Yes (Other)
  Sender: FDA-Public Use
  Company Number: CA-ROCHE-GNE249093

PATIENT
  Sex: Female
  Weight: 61.065 kg

DRUGS (5)
  1. OMALIZUMAB [Suspect]
     Indication: ASTHMA
     Dosage: 150 MG, Q4W
     Route: 058
     Dates: start: 20070118
  2. OMALIZUMAB [Suspect]
  3. OMALIZUMAB [Suspect]
     Route: 058
     Dates: start: 20091016
  4. OMALIZUMAB [Suspect]
     Route: 058
     Dates: start: 20090918
  5. OMALIZUMAB [Suspect]
     Route: 058
     Dates: start: 20090819

REACTIONS (5)
  - ASTHMA [None]
  - DRUG INEFFECTIVE [None]
  - DYSPHONIA [None]
  - ANXIETY [None]
  - PHARYNGITIS [None]
